FAERS Safety Report 23068044 (Version 1)
Quarter: 2023Q4

REPORT INFORMATION
  Report Type: Spontaneous
  Country: US (occurrence: US)
  Receive Date: 20231016
  Receipt Date: 20231016
  Transmission Date: 20240110
  Serious: Yes (Hospitalization)
  Sender: FDA-Public Use
  Company Number: US-MYLANLABS-2023M1106559

PATIENT
  Age: 69 Year
  Sex: Female

DRUGS (3)
  1. ESMOLOL [Suspect]
     Active Substance: ESMOLOL HYDROCHLORIDE
     Indication: Atrial fibrillation
     Dosage: UNK, IV DRIP; REQUIRED OVER 7.5 LITERS OF ESMOLOL OVER THE COURSE OF 2 DAYS.
     Route: 042
  2. STERILE WATER FOR INJECTION [Suspect]
     Active Substance: WATER
     Indication: Vehicle solution use
     Dosage: UNK, THE ESMOLOL FORMULATION CONTAINED APPROXIMATELY 250ML OF WATER PER BAG (2500 MG/250ML).; IV DRI
     Route: 042
  3. METOPROLOL [Concomitant]
     Active Substance: METOPROLOL
     Indication: Atrial fibrillation
     Dosage: UNK
     Route: 042

REACTIONS (1)
  - Hyponatraemia [Recovered/Resolved]
